FAERS Safety Report 4366690-7 (Version None)
Quarter: 2004Q2

REPORT INFORMATION
  Report Type: 
  Country: None (occurrence: None)
  Receive Date: 20040527
  Receipt Date: 20040521
  Transmission Date: 20050107
  Serious: Yes (Hospitalization)
  Sender: FDA-Public Use
  Company Number: US-AMGEN-US077194

PATIENT
  Sex: Male
  Weight: 86.3 kg

DRUGS (10)
  1. ARANESP [Suspect]
     Indication: RENAL FAILURE CHRONIC
     Route: 058
     Dates: start: 20030101, end: 20040510
  2. CELLCEPT [Suspect]
     Indication: RENAL TRANSPLANT
     Dates: start: 20031205
  3. ALLOPURINOL [Concomitant]
     Dates: start: 19850101
  4. RAPAMUNE [Concomitant]
     Dates: end: 20031210
  5. COUMADIN [Concomitant]
     Dates: start: 20000501, end: 20040420
  6. LOVENOX [Concomitant]
     Dates: start: 20040420
  7. DIGOXIN [Concomitant]
     Dates: start: 20000501
  8. DIATX [Concomitant]
     Dates: start: 20020101
  9. LASIX [Concomitant]
     Dates: start: 19850101
  10. PREDNISONE [Concomitant]
     Dates: start: 19850101

REACTIONS (3)
  - BONE MARROW DEPRESSION [None]
  - FAECAL OCCULT BLOOD POSITIVE [None]
  - THERAPEUTIC RESPONSE DECREASED [None]
